FAERS Safety Report 6212662-7 (Version None)
Quarter: 2009Q2

REPORT INFORMATION
  Report Type: 
  Country: None (occurrence: None)
  Receive Date: 20090603
  Receipt Date: 20090526
  Transmission Date: 20091009
  Serious: Yes (Other)
  Sender: FDA-Public Use
  Company Number: US-AMGEN-QUU348433

PATIENT
  Sex: Male

DRUGS (1)
  1. ENBREL [Suspect]
     Indication: PSORIASIS
     Route: 058
     Dates: start: 20060120

REACTIONS (4)
  - ABNORMAL FAECES [None]
  - COELIAC DISEASE [None]
  - DIARRHOEA [None]
  - RECTAL HAEMORRHAGE [None]
